FAERS Safety Report 4412510-1 (Version None)
Quarter: 2004Q2

REPORT INFORMATION
  Report Type: 
  Country: None (occurrence: None)
  Receive Date: 20040630
  Receipt Date: 20040423
  Transmission Date: 20050107
  Serious: No
  Sender: FDA-Public Use
  Company Number: 04P-163-0258608-00

PATIENT
  Age: 62 Year
  Sex: Female
  Weight: 71.2147 kg

DRUGS (5)
  1. HUMIRA 40 MG/0.8ML PREFILLED SYRINGE (ADALIBUMAB) [Suspect]
     Indication: RHEUMATOID ARTHRITIS
     Dosage: 40 MG, 1 IN 2 WK, SUBCUTANEOUS
     Route: 058
     Dates: start: 20040326
  2. HYDROXYCHLOROQUINE PHOSPHATE [Concomitant]
  3. IBUPROFEN [Concomitant]
  4. OMEPRAZOLE [Concomitant]
  5. ACETAMINOPHEN [Concomitant]

REACTIONS (1)
  - INJECTION SITE PAIN [None]
